FAERS Safety Report 9109660 (Version 1)
Quarter: 2013Q1

REPORT INFORMATION
  Report Type: Other
  Country: KR (occurrence: KR)
  Receive Date: 20130222
  Receipt Date: 20130222
  Transmission Date: 20140127
  Serious: Yes (Hospitalization)
  Sender: FDA-Public Use
  Company Number: KR-BRISTOL-MYERS SQUIBB COMPANY-17387267

PATIENT
  Age: 62 Year
  Sex: Male

DRUGS (6)
  1. METFORMIN HCL [Suspect]
     Indication: DIABETES MELLITUS
  2. AMLODIPINE [Concomitant]
  3. VALSARTAN [Concomitant]
  4. CALCIUM CARBONATE [Concomitant]
  5. VITAMIN B COMPLEX + C [Concomitant]
  6. GLICLAZIDE [Concomitant]

REACTIONS (1)
  - Toxic encephalopathy [Recovered/Resolved]
